FAERS Safety Report 9728337 (Version 4)
Quarter: 2014Q2

REPORT INFORMATION
  Report Type: Spontaneous
  Country: GB (occurrence: GB)
  Receive Date: 20131204
  Receipt Date: 20140506
  Transmission Date: 20141212
  Serious: Yes (Hospitalization, Other)
  Sender: FDA-Public Use
  Company Number: PHFR2013GB006873

PATIENT
  Age: 64 Year
  Sex: Male

DRUGS (10)
  1. ACZ885 [Suspect]
     Indication: SCHNITZLER^S SYNDROME
     Dosage: 150 MG, UNK
     Route: 058
     Dates: start: 20130425
  2. ACZ885 [Suspect]
     Indication: OFF LABEL USE
     Dosage: 150 MG
     Route: 058
     Dates: start: 20131204
  3. PREDNISOLONE [Concomitant]
     Indication: SCHNITZLER^S SYNDROME
     Dosage: 15 MG, UNK
     Route: 048
  4. LEVOTHYROXINE [Concomitant]
     Indication: HYPOTHYROIDISM
     Route: 048
  5. AMLODIPINE [Concomitant]
     Indication: HYPERTENSION
     Route: 048
  6. METFORMIN [Concomitant]
     Indication: TYPE 2 DIABETES MELLITUS
     Route: 048
  7. ALENDRONIC [Concomitant]
     Indication: BLOOD CHOLESTEROL INCREASED
  8. FLUVASTATIN [Concomitant]
     Indication: BLOOD CHOLESTEROL INCREASED
  9. WARFARIN [Concomitant]
     Indication: PULMONARY EMBOLISM
     Route: 048
  10. CALCICHEW [Concomitant]
     Route: 048

REACTIONS (8)
  - Lower respiratory tract infection [Recovered/Resolved]
  - Colitis ischaemic [Recovering/Resolving]
  - Intestinal obstruction [Recovering/Resolving]
  - Vomiting [Recovering/Resolving]
  - Schnitzler^s syndrome [Unknown]
  - Condition aggravated [Unknown]
  - Influenza [Unknown]
  - Drug ineffective [Unknown]
